FAERS Safety Report 8913815 (Version 2)
Quarter: 2012Q4

REPORT INFORMATION
  Report Type: 
  Country: DE (occurrence: IT)
  Receive Date: 20121119
  Receipt Date: 20121129
  Transmission Date: 20130627
  Serious: Yes (Hospitalization)
  Sender: FDA-Public Use
  Company Number: IT-BRISTOL-MYERS SQUIBB COMPANY-17136235

PATIENT
  Age: 35 Year
  Sex: Female

DRUGS (11)
  1. GLUCOPHAGE [Suspect]
     Dosage: Glucophage 500mg
     Route: 048
     Dates: start: 20120309, end: 20121022
  2. CATAPRESAN [Suspect]
     Dosage: Ctapresen TTS (5mg):cutaneous
     Route: 048
     Dates: start: 20121017, end: 20121022
  3. RAMIPRIL [Suspect]
     Dosage: Ramipril Doc Generics 5 mg
     Route: 048
     Dates: start: 20121017, end: 20121022
  4. LOBIDIUR [Suspect]
     Dosage: Lobidiur 5mg/25mg
     Dates: start: 20121017, end: 20121022
  5. NORVASC [Concomitant]
     Dosage: Norvasac 10mg
     Route: 048
  6. FERRO-GRADUMET [Concomitant]
     Dosage: Ferro-gradumet 105mg
     Route: 048
  7. PLASIL [Concomitant]
     Dosage: Plasil 10mg
  8. LUCEN [Concomitant]
     Dosage: Lusen 20mg
     Route: 048
  9. MINULET [Concomitant]
     Dosage: 1 DF:0.075mg+0.03mg
Minulet 0.075mg+0.03mg
     Route: 048
  10. ACTOS [Concomitant]
     Dosage: Actos 30mg
     Route: 048
  11. ALLOPURINOL [Concomitant]
     Dosage: Allopurinol Teva 300mg
     Route: 048

REACTIONS (1)
  - Renal failure acute [Recovered/Resolved]
